FAERS Safety Report 4698869-9 (Version None)
Quarter: 2005Q2

REPORT INFORMATION
  Report Type: 
  Country: None (occurrence: None)
  Receive Date: 20050624
  Receipt Date: 20050512
  Transmission Date: 20051028
  Serious: Yes (Other)
  Sender: FDA-Public Use
  Company Number: PHNU2005DE01950

PATIENT
  Sex: Female

DRUGS (2)
  1. LAMISIL [Suspect]
     Indication: ONYCHOMYCOSIS
     Route: 048
     Dates: start: 20040101, end: 20040101
  2. DIFLUCAN [Concomitant]
     Route: 065
     Dates: start: 20040101, end: 20040101

REACTIONS (2)
  - ARTHROPATHY [None]
  - PSORIASIS [None]
